FAERS Safety Report 10238497 (Version 1)
Quarter: 2014Q2

REPORT INFORMATION
  Report Type: Spontaneous
  Country: US (occurrence: US)
  Receive Date: 20140616
  Receipt Date: 20140616
  Transmission Date: 20141212
  Serious: No
  Sender: FDA-Public Use
  Company Number: US-009507513-1405USA006826

PATIENT
  Sex: Female

DRUGS (4)
  1. CLARITIN LIQUIGELS [Suspect]
     Indication: HYPERSENSITIVITY
     Dosage: 10 MG, ONCE
     Route: 048
     Dates: start: 2014
  2. CLARITIN LIQUIGELS [Suspect]
     Indication: HEADACHE
  3. CLARITIN LIQUIGELS [Suspect]
     Indication: THROAT IRRITATION
  4. CLARITIN LIQUIGELS [Suspect]
     Indication: DYSPNOEA

REACTIONS (3)
  - Therapeutic response changed [Unknown]
  - Expired product administered [Unknown]
  - Off label use [Unknown]
